FAERS Safety Report 8051979-0 (Version None)
Quarter: 2012Q1

REPORT INFORMATION
  Report Type: 
  Country: None (occurrence: None)
  Receive Date: 20120118
  Receipt Date: 20120109
  Transmission Date: 20120608
  Serious: Yes (Hospitalization)
  Sender: FDA-Public Use
  Company Number: US-BAYER-2010-002064

PATIENT
  Age: 25 Year
  Sex: Female
  Weight: 140.59 kg

DRUGS (1)
  1. YASMIN [Suspect]
     Dosage: UNK
     Dates: start: 20030101, end: 20080501

REACTIONS (2)
  - GALLBLADDER INJURY [None]
  - THROMBOSIS [None]
